FAERS Safety Report 12503495 (Version 1)
Quarter: 2016Q2

REPORT INFORMATION
  Report Type: Spontaneous
  Country: US (occurrence: US)
  Receive Date: 20160628
  Receipt Date: 20160628
  Transmission Date: 20160815
  Serious: No
  Sender: FDA-Public Use
  Company Number: US-PFIZER INC-2016308320

PATIENT
  Sex: Male

DRUGS (3)
  1. PRILOSEC [Interacting]
     Active Substance: OMEPRAZOLE MAGNESIUM
     Dosage: UNK UNK, DAILY
  2. INLYTA [Suspect]
     Active Substance: AXITINIB
     Indication: METASTATIC RENAL CELL CARCINOMA
     Dosage: 5 MG, 2X/DAY
  3. INLYTA [Interacting]
     Active Substance: AXITINIB
     Dosage: 3 MG, 2X/DAY

REACTIONS (3)
  - Drug interaction [Unknown]
  - Hepatic enzyme increased [Unknown]
  - Dyspepsia [Unknown]
